FAERS Safety Report 24166675 (Version 1)
Quarter: 2024Q3

REPORT INFORMATION
  Report Type: Spontaneous
  Country: FR (occurrence: FR)
  Receive Date: 20240802
  Receipt Date: 20240802
  Transmission Date: 20241017
  Serious: Yes (Hospitalization)
  Sender: MYLAN
  Company Number: FR-MYLANLABS-2024M1071509

PATIENT
  Age: 65 Year
  Sex: Female

DRUGS (3)
  1. EPINEPHRINE [Suspect]
     Active Substance: EPINEPHRINE
     Indication: Anaesthesia
     Dosage: 0.005 MILLIGRAM PER MILLILITRE [10 GRAM [DF: 0.005 MG/ML; 10G NEEDLE INJECTION]
     Route: 065
  2. XYLOCAINE [Suspect]
     Active Substance: LIDOCAINE HYDROCHLORIDE\LIDOCAINE HYDROCHLORIDE ANHYDROUS
     Indication: Local anaesthesia
     Dosage: 10 MILLIGRAM PER MILLILITRE [DF: 10 MG/ML; 10G NEEDLE INJECTION]
     Route: 065
  3. SODIUM BICARBONATE [Suspect]
     Active Substance: SODIUM BICARBONATE
     Indication: Anaesthesia
     Dosage: 0.084 GRAM PER LITRE [DF: 0.084 G/ML; 10G NEEDLE INJECTION]
     Route: 065

REACTIONS (2)
  - Skin necrosis [Unknown]
  - Off label use [Unknown]
